FAERS Safety Report 19659229 (Version 1)
Quarter: 2021Q3

REPORT INFORMATION
  Report Type: Spontaneous
  Country: GB (occurrence: GB)
  Receive Date: 20210805
  Receipt Date: 20210805
  Transmission Date: 20211014
  Serious: Yes (Disabling)
  Sender: FDA-Public Use
  Company Number: GB-TEVA-2021-GB-1938280

PATIENT
  Age: 35 Year
  Sex: Male
  Weight: 100 kg

DRUGS (2)
  1. LEVOFLOXACIN. [Suspect]
     Active Substance: LEVOFLOXACIN
     Indication: PROSTATITIS
     Dosage: 750 MILLIGRAM DAILY;
     Route: 048
     Dates: start: 20210519, end: 20210522
  2. RETINOL [Suspect]
     Active Substance: RETINOL
     Indication: ACNE
     Dosage: 100000 IU (INTERNATIONAL UNIT) DAILY; FOR A PERIOD OF TWO MONTHS
     Route: 065

REACTIONS (8)
  - Vaccination failure [Not Recovered/Not Resolved]
  - Tendon disorder [Not Recovered/Not Resolved]
  - Dyspnoea exertional [Not Recovered/Not Resolved]
  - Insomnia [Not Recovered/Not Resolved]
  - Arthralgia [Not Recovered/Not Resolved]
  - Depression [Not Recovered/Not Resolved]
  - Paraesthesia [Not Recovered/Not Resolved]
  - Oesophagitis [Not Recovered/Not Resolved]

NARRATIVE: CASE EVENT DATE: 20210521
